FAERS Safety Report 18006350 (Version 1)
Quarter: 2020Q3

REPORT INFORMATION
  Report Type: Report from Study
  Country: FR (occurrence: FR)
  Receive Date: 20200710
  Receipt Date: 20200710
  Transmission Date: 20201103
  Serious: Yes (Hospitalization, Other)
  Sender: FDA-Public Use
  Company Number: FR-BION-008838

PATIENT

DRUGS (2)
  1. HYDROXYCHLOROQUINE [Suspect]
     Active Substance: HYDROXYCHLOROQUINE
     Indication: COVID-19
     Route: 048
  2. AZITHROMYCIN ANHYDROUS. [Suspect]
     Active Substance: AZITHROMYCIN ANHYDROUS
     Indication: COVID-19
     Dosage: 500 MG ON DAY ONE, FOLLOWED BY 250 MG PER DAY FOR THE NEXT FOUR DAYS

REACTIONS (2)
  - Product use in unapproved indication [Not Recovered/Not Resolved]
  - Atrial flutter [Unknown]

NARRATIVE: CASE EVENT DATE: 2020
